FAERS Safety Report 8270000-2 (Version None)
Quarter: 2012Q2

REPORT INFORMATION
  Report Type: 
  Country: None (occurrence: None)
  Receive Date: 20120405
  Receipt Date: 20120323
  Transmission Date: 20120825
  Serious: Yes (Other)
  Sender: FDA-Public Use
  Company Number: JPI-P-020549

PATIENT
  Age: 45 Year
  Sex: Female

DRUGS (7)
  1. CITALOPRAM HYDROBROMIDE [Concomitant]
  2. XYREM [Suspect]
     Indication: NARCOLEPSY
     Dosage: SEE IMAGE
     Route: 048
     Dates: start: 20100820, end: 20100913
  3. XYREM [Suspect]
     Indication: NARCOLEPSY
     Dosage: SEE IMAGE
     Route: 048
     Dates: start: 20110405
  4. XYREM [Suspect]
     Indication: NARCOLEPSY
     Dosage: SEE IMAGE
     Route: 048
     Dates: start: 20100915
  5. XYREM [Suspect]
     Indication: NARCOLEPSY
     Dosage: SEE IMAGE
     Route: 048
     Dates: start: 20100914, end: 20100914
  6. LEVOTHYROXINE SODIUM [Concomitant]
  7. LISINOPRIL [Concomitant]

REACTIONS (11)
  - DIABETES MELLITUS [None]
  - SOMNOLENCE [None]
  - DEPRESSION [None]
  - RASH ERYTHEMATOUS [None]
  - DECREASED APPETITE [None]
  - WEIGHT DECREASED [None]
  - AMNESIA [None]
  - RASH PRURITIC [None]
  - DIZZINESS [None]
  - TREMOR [None]
  - ANXIETY [None]
